FAERS Safety Report 23304868 (Version 1)
Quarter: 2023Q4

REPORT INFORMATION
  Report Type: Spontaneous
  Country: US (occurrence: US)
  Receive Date: 20231218
  Receipt Date: 20231218
  Transmission Date: 20240109
  Serious: No
  Sender: FDA-Public Use
  Company Number: US-ABBVIE-5542136

PATIENT
  Sex: Male

DRUGS (2)
  1. ALPHAGAN P [Suspect]
     Active Substance: BRIMONIDINE TARTRATE
     Indication: Product used for unknown indication
     Dosage: 0.1 %
     Route: 047
  2. ALPHAGAN P [Suspect]
     Active Substance: BRIMONIDINE TARTRATE
     Dosage: 0.1 %
     Route: 047

REACTIONS (3)
  - Product container issue [Unknown]
  - Product administration error [Unknown]
  - Product contamination [Unknown]

NARRATIVE: CASE EVENT DATE: 20231207
